FAERS Safety Report 7254258-4 (Version None)
Quarter: 2011Q1

REPORT INFORMATION
  Report Type: 
  Country: None (occurrence: None)
  Receive Date: 20110129
  Receipt Date: 20100113
  Transmission Date: 20110831
  Serious: No
  Sender: FDA-Public Use
  Company Number: US-ABBOTT-10P-163-0617720-00

PATIENT
  Sex: Female
  Weight: 46.762 kg

DRUGS (2)
  1. HUMIRA [Suspect]
     Indication: CROHN'S DISEASE
     Dosage: DAY 1
     Dates: start: 20100102, end: 20100102
  2. HUMIRA [Suspect]
     Dosage: DAY 2
     Dates: start: 20100103

REACTIONS (2)
  - ABDOMINAL RIGIDITY [None]
  - ABDOMINAL DISTENSION [None]
